FAERS Safety Report 25747529 (Version 1)
Quarter: 2025Q3

REPORT INFORMATION
  Report Type: Spontaneous
  Country: NP (occurrence: NP)
  Receive Date: 20250901
  Receipt Date: 20250901
  Transmission Date: 20251021
  Serious: Yes (Other)
  Sender: EXELA PHARMA SCIENCES
  Company Number: NP-EXELAPHARMA-2025EXLA00169

PATIENT
  Sex: Female

DRUGS (3)
  1. TRANEXAMIC ACID [Suspect]
     Active Substance: TRANEXAMIC ACID
     Indication: Haemoptysis
  2. CODEINE [Suspect]
     Active Substance: CODEINE
     Indication: Haemoptysis
  3. UNSPECIFIED INGREDIENT [Suspect]
     Active Substance: UNSPECIFIED INGREDIENT
     Indication: Haemoptysis

REACTIONS (1)
  - Drug ineffective for unapproved indication [Unknown]
